FAERS Safety Report 5361593-3 (Version None)
Quarter: 2007Q2

REPORT INFORMATION
  Report Type: 
  Country: None (occurrence: None)
  Receive Date: 20070615
  Receipt Date: 20070615
  Transmission Date: 20071010
  Serious: No
  Sender: FDA-Public Use
  Company Number: None

PATIENT
  Age: 44 Year
  Sex: Female

DRUGS (2)
  1. DURAGESIC-50 [Suspect]
     Dosage: 50MCG Q72HR TOPICAL
     Route: 061
     Dates: start: 20070522
  2. DURAGESIC-50 [Suspect]
     Dosage: 50MCG Q72HR TOPICAL
     Route: 061
     Dates: start: 20070612

REACTIONS (5)
  - DIZZINESS [None]
  - HYPERHIDROSIS [None]
  - NAUSEA [None]
  - PHARMACEUTICAL PRODUCT COMPLAINT [None]
  - VOMITING [None]
